FAERS Safety Report 13372755 (Version 1)
Quarter: 2017Q1

REPORT INFORMATION
  Report Type: Spontaneous
  Country: US (occurrence: US)
  Receive Date: 20170324
  Receipt Date: 20170324
  Transmission Date: 20170429
  Serious: Yes (Disabling)
  Sender: FDA-Public Use
  Company Number: None

PATIENT
  Age: 27 Year
  Sex: Male
  Weight: 62.1 kg

DRUGS (8)
  1. CIPROFLOXACIN HCL 500MG TAB [Suspect]
     Active Substance: CIPROFLOXACIN
     Indication: GASTROENTERITIS ESCHERICHIA COLI
     Dosage: ?          QUANTITY:28 TABLET(S);?
     Route: 048
     Dates: start: 20170309, end: 20170317
  2. NIACINAMIDE [Concomitant]
     Active Substance: NIACINAMIDE
  3. GABA [Concomitant]
     Active Substance: HOMEOPATHICS
  4. METHYL B-12 [Concomitant]
  5. COQ10 [Concomitant]
     Active Substance: UBIDECARENONE
  6. NAC [Concomitant]
  7. MAGNESIUM [Concomitant]
     Active Substance: MAGNESIUM
  8. INOSITOL [Concomitant]
     Active Substance: INOSITOL

REACTIONS (3)
  - Arthralgia [None]
  - Tendon pain [None]
  - Musculoskeletal pain [None]

NARRATIVE: CASE EVENT DATE: 20170315
